FAERS Safety Report 10077151 (Version 3)
Quarter: 2014Q2

REPORT INFORMATION
  Report Type: Report from Study
  Country: CA (occurrence: CA)
  Receive Date: 20140414
  Receipt Date: 20140428
  Transmission Date: 20141212
  Serious: Yes (Other)
  Sender: FDA-Public Use
  Company Number: PHHY2013CA042927

PATIENT
  Age: 65 Year
  Sex: Female

DRUGS (7)
  1. GLEEVEC [Suspect]
     Indication: CHRONIC MYELOID LEUKAEMIA
     Dosage: 400 MG, QD
     Route: 048
     Dates: start: 20130320, end: 20140119
  2. GLEEVEC [Suspect]
     Dosage: 400 MG, QD
     Route: 048
     Dates: start: 20140218
  3. CELEBREX [Concomitant]
     Dosage: UNK UKN, UNK
  4. VENTOLINE [Concomitant]
     Dosage: UNK UKN, UNK
  5. NEXIUM 1-2-3 [Concomitant]
     Dosage: UNK UKN, UNK
  6. ALLOPURINOL [Concomitant]
     Dosage: UNK UKN, UNK
  7. ENSURE [Concomitant]
     Dosage: UNK UKN, UNK

REACTIONS (20)
  - Asthma [Recovering/Resolving]
  - Acrochordon [Unknown]
  - Seasonal allergy [Unknown]
  - Influenza like illness [Unknown]
  - Impaired healing [Unknown]
  - Visual impairment [Not Recovered/Not Resolved]
  - Lower respiratory tract infection [Recovering/Resolving]
  - Feeling cold [Unknown]
  - Hypophagia [Unknown]
  - Dysgeusia [Unknown]
  - Nausea [Unknown]
  - Pruritus [Unknown]
  - Weight decreased [Unknown]
  - Fatigue [Unknown]
  - Arthralgia [Not Recovered/Not Resolved]
  - Cough [Recovering/Resolving]
  - Arthritis [Unknown]
  - Vision blurred [Not Recovered/Not Resolved]
  - Dry skin [Unknown]
  - Headache [Unknown]
